FAERS Safety Report 4856699-9 (Version None)
Quarter: 2005Q4

REPORT INFORMATION
  Report Type: 
  Country: None (occurrence: None)
  Receive Date: 20051219
  Receipt Date: 20050113
  Transmission Date: 20060501
  Serious: No
  Sender: FDA-Public Use
  Company Number: US-GLAXOSMITHKLINE-A0540730A

PATIENT
  Age: 63 Year

DRUGS (3)
  1. NICODERM CQ [Suspect]
     Dates: start: 20041230
  2. ADVAIR DISKUS 250/50 [Concomitant]
  3. ALBUTEROL [Concomitant]

REACTIONS (1)
  - DRY MOUTH [None]
